FAERS Safety Report 8920844 (Version 1)
Quarter: 2012Q4

REPORT INFORMATION
  Report Type: 
  Country: AE (occurrence: AE)
  Receive Date: 20121121
  Receipt Date: 20121121
  Transmission Date: 20130627
  Serious: Yes (Death, Life-Threatening, Hospitalization, Disabling)
  Sender: FDA-Public Use
  Company Number: AE-B.I. PHARMACEUTICALS,INC./RIDGEFIELD-2012-CS-01586AE

PATIENT
  Age: 77 Year
  Sex: Female

DRUGS (1)
  1. PRADAXA [Suspect]
     Indication: ATRIAL FIBRILLATION
     Dosage: 220 mg
     Dates: start: 20121104

REACTIONS (1)
  - Gastrointestinal haemorrhage [Fatal]
